FAERS Safety Report 10989798 (Version 1)
Quarter: 2015Q2

REPORT INFORMATION
  Report Type: Spontaneous
  Country: GB (occurrence: GB)
  Receive Date: 20150406
  Receipt Date: 20150406
  Transmission Date: 20150821
  Serious: Yes (Other)
  Sender: FDA-Public Use
  Company Number: GB-CIPLA LTD.-2015GB02649

PATIENT

DRUGS (2)
  1. ARCOXIA [Suspect]
     Active Substance: ETORICOXIB
     Route: 048
  2. RAMIPRIL. [Suspect]
     Active Substance: RAMIPRIL

REACTIONS (5)
  - Transient ischaemic attack [Unknown]
  - Feeding disorder [Unknown]
  - Hypertension [Not Recovered/Not Resolved]
  - Cough [Unknown]
  - Mouth ulceration [Unknown]
